FAERS Safety Report 5280780-6 (Version None)
Quarter: 2007Q1

REPORT INFORMATION
  Report Type: 
  Country: None (occurrence: None)
  Receive Date: 20070329
  Receipt Date: 20070319
  Transmission Date: 20070707
  Serious: Yes (Other)
  Sender: FDA-Public Use
  Company Number: US-PFIZER INC-2007020508

PATIENT
  Sex: Male
  Weight: 104.3 kg

DRUGS (6)
  1. BEXTRA [Suspect]
     Indication: INTERVERTEBRAL DISC PROTRUSION
     Route: 048
     Dates: start: 20030714, end: 20030715
  2. ESKALITH [Suspect]
     Route: 048
     Dates: start: 20030101, end: 20030701
  3. HYOSCYAMINE [Concomitant]
     Indication: IRRITABLE BOWEL SYNDROME
  4. ASPIRIN [Concomitant]
  5. ULTRAM [Concomitant]
     Dates: start: 20020101
  6. ATENOLOL [Concomitant]
     Route: 048

REACTIONS (1)
  - BLISTER [None]
